FAERS Safety Report 7801452-7 (Version None)
Quarter: 2011Q4

REPORT INFORMATION
  Report Type: 
  Country: None (occurrence: None)
  Receive Date: 20111007
  Receipt Date: 20110926
  Transmission Date: 20120403
  Serious: Yes (Hospitalization)
  Sender: FDA-Public Use
  Company Number: US-JNJFOC-20110900106

PATIENT
  Sex: Male
  Weight: 56.6 kg

DRUGS (2)
  1. INFLIXIMAB, RECOMBINANT [Suspect]
     Indication: INFLAMMATORY BOWEL DISEASE
     Route: 042
     Dates: start: 20061003, end: 20080116
  2. AZATHIOPRINE [Concomitant]

REACTIONS (1)
  - PERIRECTAL ABSCESS [None]
